FAERS Safety Report 19269135 (Version 2)
Quarter: 2021Q2

REPORT INFORMATION
  Report Type: Spontaneous
  Country: US (occurrence: US)
  Receive Date: 20210518
  Receipt Date: 20210602
  Transmission Date: 20210717
  Serious: No
  Sender: FDA-Public Use
  Company Number: US-AMGEN-USASP2021073886

PATIENT
  Age: 67 Year
  Sex: Female
  Weight: 59.7 kg

DRUGS (2)
  1. MVASI [Suspect]
     Active Substance: BEVACIZUMAB-AWWB
     Indication: NON-SMALL CELL LUNG CANCER
     Dosage: 900 MILLIGRAM
     Route: 065
     Dates: start: 20210311
  2. PEMETREXED. [Concomitant]
     Active Substance: PEMETREXED
     Dosage: 375 MILLIGRAM/SQ. METER, Q3WK

REACTIONS (2)
  - Impaired healing [Recovered/Resolved]
  - Cyst removal [Unknown]

NARRATIVE: CASE EVENT DATE: 2021
